FAERS Safety Report 4887407-3 (Version None)
Quarter: 2006Q1

REPORT INFORMATION
  Report Type: 
  Country: None (occurrence: None)
  Receive Date: 20060118
  Receipt Date: 20060102
  Transmission Date: 20060701
  Serious: No
  Sender: FDA-Public Use
  Company Number: 2005-135666-NL

PATIENT
  Age: 52 Year
  Sex: Male

DRUGS (8)
  1. MIRTAZAPINE [Suspect]
     Indication: DEPRESSION
     Dosage: SEE IMAGE
     Route: 048
     Dates: start: 29951012, end: 20051018
  2. MIRTAZAPINE [Suspect]
     Indication: SLEEP DISORDER
     Dosage: SEE IMAGE
     Route: 048
     Dates: start: 29951012, end: 20051018
  3. MIRTAZAPINE [Suspect]
     Indication: DEPRESSION
     Dosage: SEE IMAGE
     Route: 048
     Dates: start: 20051110
  4. MIRTAZAPINE [Suspect]
     Indication: SLEEP DISORDER
     Dosage: SEE IMAGE
     Route: 048
     Dates: start: 20051110
  5. TRAMADOL HCL [Suspect]
     Dosage: 150 MG
  6. AMITRIPTYLINE HCL [Concomitant]
  7. TEMAZEPAM [Concomitant]
  8. ARTHRYL [Concomitant]

REACTIONS (5)
  - ALCOHOL USE [None]
  - CONFUSIONAL STATE [None]
  - CONVULSION [None]
  - DYSGEUSIA [None]
  - LOSS OF CONSCIOUSNESS [None]
